FAERS Safety Report 13133065 (Version 3)
Quarter: 2017Q1

REPORT INFORMATION
  Report Type: Spontaneous
  Country: US (occurrence: US)
  Receive Date: 20170120
  Receipt Date: 20170221
  Transmission Date: 20170428
  Serious: No
  Sender: FDA-Public Use
  Company Number: ALCN2017US000774

PATIENT
  Age: 76 Year
  Sex: Female
  Weight: 60 kg

DRUGS (5)
  1. BETOPTIC S [Suspect]
     Active Substance: BETAXOLOL HYDROCHLORIDE
     Indication: GLAUCOMA
     Dosage: 1 GTT, BID
     Route: 047
  2. HIDROCORTISON [Concomitant]
     Active Substance: HYDROCORTISONE
     Indication: BLOOD CORTISOL DECREASED
     Dosage: 10 MG, UNK
     Route: 065
  3. XALATAN [Concomitant]
     Active Substance: LATANOPROST
     Indication: HYPERTENSION
     Dosage: 1 GTT, UNK
     Route: 065
  4. PRAVASTATIN. [Concomitant]
     Active Substance: PRAVASTATIN
     Indication: BLOOD CHOLESTEROL INCREASED
     Route: 065
  5. LEVOTHYROXIN [Concomitant]
     Active Substance: LEVOTHYROXINE
     Indication: PITUITARY TUMOUR
     Dosage: 75 UG, UNK
     Route: 065
     Dates: start: 1990

REACTIONS (2)
  - Suspected counterfeit product [Unknown]
  - Intraocular pressure increased [Not Recovered/Not Resolved]

NARRATIVE: CASE EVENT DATE: 201412
